FAERS Safety Report 6332541-4 (Version None)
Quarter: 2009Q3

REPORT INFORMATION
  Report Type: 
  Country: None (occurrence: None)
  Receive Date: 20090828
  Receipt Date: 20090821
  Transmission Date: 20100115
  Serious: Yes (Other)
  Sender: FDA-Public Use
  Company Number: US-B.I. PHARMACEUTICALS,INC./RIDGEFIELD-2009-DE-05590GD

PATIENT

DRUGS (3)
  1. DIPYRIDAMOLE [Suspect]
     Indication: ANTIPLATELET THERAPY
  2. ASPIRIN [Suspect]
     Indication: ANTIPLATELET THERAPY
  3. ANTITHROMBOTIC AGENTS [Suspect]
     Indication: ANTICOAGULANT THERAPY

REACTIONS (2)
  - HAEMORRHAGE INTRACRANIAL [None]
  - SUBDURAL HAEMORRHAGE [None]
